FAERS Safety Report 9967996 (Version 1)
Quarter: 2014Q1

REPORT INFORMATION
  Report Type: Report from Study
  Country: US (occurrence: US)
  Receive Date: 20140306
  Receipt Date: 20140306
  Transmission Date: 20141002
  Serious: No
  Sender: FDA-Public Use
  Company Number: US-ABBVIE-13P-163-1142079-00

PATIENT
  Sex: Female
  Weight: 54.48 kg

DRUGS (10)
  1. HUMIRA [Suspect]
     Indication: RHEUMATOID ARTHRITIS
     Dates: start: 2006, end: 201307
  2. LEXAPRO [Concomitant]
     Indication: DEPRESSION
  3. LEUKOVORIN [Concomitant]
     Indication: MINERAL SUPPLEMENTATION
  4. METHOTREXATE [Concomitant]
     Indication: RHEUMATOID ARTHRITIS
  5. CELEBREX [Concomitant]
     Indication: RHEUMATOID ARTHRITIS
  6. FOSAMAX [Concomitant]
     Indication: OSTEOPOROSIS
  7. MAXIDE [Concomitant]
     Indication: BLOOD PRESSURE MANAGEMENT
  8. VITAMINS [Concomitant]
     Indication: VITAMIN SUPPLEMENTATION
  9. CALCIUM [Concomitant]
     Indication: MINERAL SUPPLEMENTATION
  10. ASPIRIN [Concomitant]
     Indication: PRODUCT USED FOR UNKNOWN INDICATION

REACTIONS (5)
  - Sciatica [Not Recovered/Not Resolved]
  - Incorrect route of drug administration [Recovered/Resolved]
  - Rheumatoid arthritis [Not Recovered/Not Resolved]
  - Pain in extremity [Not Recovered/Not Resolved]
  - Pain in extremity [Not Recovered/Not Resolved]
